FAERS Safety Report 25121635 (Version 1)
Quarter: 2025Q1

REPORT INFORMATION
  Report Type: Spontaneous
  Country: BG (occurrence: BG)
  Receive Date: 20250326
  Receipt Date: 20250326
  Transmission Date: 20250409
  Serious: Yes (Hospitalization, Other)
  Sender: TERSERA THERAPEUTICS
  Company Number: BG-AstraZeneca-CH-00828018A

PATIENT

DRUGS (7)
  1. GOSERELIN [Suspect]
     Active Substance: GOSERELIN
     Indication: Product used for unknown indication
     Route: 065
  2. ZOLADEX [Suspect]
     Active Substance: GOSERELIN ACETATE
     Indication: Product used for unknown indication
     Route: 065
  3. NOLVADEX [Suspect]
     Active Substance: TAMOXIFEN CITRATE
     Indication: Product used for unknown indication
     Route: 065
     Dates: start: 202304
  4. DAPAGLIFLOZIN [Suspect]
     Active Substance: DAPAGLIFLOZIN
     Indication: Cardiac failure
     Route: 048
     Dates: start: 202407
  5. TAMOXIFEN [Concomitant]
     Active Substance: TAMOXIFEN
     Indication: Product used for unknown indication
     Route: 065
  6. GOSERELIN [Concomitant]
     Active Substance: GOSERELIN
     Indication: Product used for unknown indication
     Route: 065
  7. DAPAGLIFLOZIN [Concomitant]
     Active Substance: DAPAGLIFLOZIN
     Indication: Product used for unknown indication
     Route: 065

REACTIONS (20)
  - Pleural effusion [Unknown]
  - Pericardial effusion [Unknown]
  - Tricuspid valve incompetence [Unknown]
  - Cardiac aneurysm [Unknown]
  - Ventricular hypokinesia [Unknown]
  - Pulmonary arterial hypertension [Unknown]
  - Eye disorder [Unknown]
  - Mitral valve incompetence [Unknown]
  - Peripheral swelling [Unknown]
  - Loss of consciousness [Unknown]
  - Palpitations [Unknown]
  - Systolic dysfunction [Unknown]
  - Diastolic dysfunction [Unknown]
  - Cardiac disorder [Unknown]
  - Viral infection [Unknown]
  - Dizziness [Unknown]
  - Blood pressure increased [Unknown]
  - Dyspnoea [Unknown]
  - Asthenia [Unknown]
  - Cough [Unknown]
